FAERS Safety Report 9898390 (Version 1)
Quarter: 2014Q1

REPORT INFORMATION
  Report Type: Report from Study
  Country: FR (occurrence: FR)
  Receive Date: 20140214
  Receipt Date: 20140214
  Transmission Date: 20141002
  Serious: Yes (Life-Threatening)
  Sender: FDA-Public Use
  Company Number: FR-SA-2014SA017283

PATIENT
  Age: 58 Year
  Sex: Female

DRUGS (6)
  1. MOZOBIL [Suspect]
     Indication: ACUTE MYELOID LEUKAEMIA
     Dosage: FROM DAY 1 TO DAY10
     Route: 042
     Dates: start: 20140113, end: 20140115
  2. MOZOBIL [Suspect]
     Indication: ACUTE MYELOID LEUKAEMIA
     Route: 042
     Dates: start: 20140120, end: 20140122
  3. GRANOCYTE [Suspect]
     Indication: ACUTE MYELOID LEUKAEMIA
     Dosage: FROM DAY 1 TO DAY 10
     Route: 042
     Dates: start: 20140113, end: 20140122
  4. CYTARABINE [Suspect]
     Indication: ACUTE MYELOID LEUKAEMIA
     Route: 042
     Dates: start: 20140113, end: 20140115
  5. CYTARABINE [Suspect]
     Indication: ACUTE MYELOID LEUKAEMIA
     Route: 042
     Dates: start: 20140120, end: 20140122
  6. DAUNORUBICIN [Suspect]
     Indication: ACUTE MYELOID LEUKAEMIA
     Route: 042
     Dates: start: 20140113, end: 20140115

REACTIONS (3)
  - Bacterial sepsis [Not Recovered/Not Resolved]
  - Febrile neutropenia [Unknown]
  - Pneumonia [Not Recovered/Not Resolved]
